FAERS Safety Report 11626460 (Version 1)
Quarter: 2015Q4

REPORT INFORMATION
  Report Type: Spontaneous
  Country: US (occurrence: US)
  Receive Date: 20151013
  Receipt Date: 20151013
  Transmission Date: 20160304
  Serious: No
  Sender: FDA-Public Use
  Company Number: US-ROCHE-1600047

PATIENT
  Sex: Female

DRUGS (1)
  1. ZELBORAF [Suspect]
     Active Substance: VEMURAFENIB
     Indication: MALIGNANT MELANOMA
     Dosage: ON 04/JUN/2015, SHE RECEIVED MOST RECENT DOSE OF VEMURAFENIB .
     Route: 048
     Dates: start: 20140807

REACTIONS (1)
  - Musculoskeletal pain [Unknown]
